FAERS Safety Report 4879568-7 (Version None)
Quarter: 2006Q1

REPORT INFORMATION
  Report Type: 
  Country: None (occurrence: None)
  Receive Date: 20060113
  Receipt Date: 20060103
  Transmission Date: 20060701
  Serious: Yes (Other)
  Sender: FDA-Public Use
  Company Number: FI-AMGEN-UK163491

PATIENT
  Sex: Male

DRUGS (5)
  1. ARANESP [Suspect]
     Indication: DIALYSIS
     Route: 065
     Dates: start: 20040101, end: 20051114
  2. CYCLOSPORINE [Concomitant]
     Route: 065
     Dates: start: 20050501
  3. CELLCEPT [Concomitant]
     Route: 065
     Dates: start: 20050501
  4. TACROLIMUS [Concomitant]
     Route: 065
  5. CORTISONE ACETATE TAB [Concomitant]
     Route: 065

REACTIONS (2)
  - APLASIA PURE RED CELL [None]
  - RENAL TRANSPLANT [None]
